FAERS Safety Report 11725374 (Version 1)
Quarter: 2015Q4

REPORT INFORMATION
  Report Type: Spontaneous
  Country: US (occurrence: US)
  Receive Date: 20151111
  Receipt Date: 20151111
  Transmission Date: 20160304
  Serious: No
  Sender: FDA-Public Use
  Company Number: US-UCBSA-2015021493

PATIENT
  Sex: Female

DRUGS (10)
  1. VIMPAT [Suspect]
     Active Substance: LACOSAMIDE
     Dosage: 50 MG -2 TABLETS, 2X/DAY (BID)
     Route: 048
     Dates: start: 20150203, end: 201502
  2. POTASSIUM CHLORIDE. [Concomitant]
     Active Substance: POTASSIUM CHLORIDE
     Indication: PRODUCT USED FOR UNKNOWN INDICATION
     Dosage: 20 MEQ, ONCE DAILY (QD) WITH FOOD
     Route: 048
  3. FERROUS SULFATE [Concomitant]
     Active Substance: FERROUS SULFATE\FERROUS SULFATE, DRIED
     Indication: PRODUCT USED FOR UNKNOWN INDICATION
     Dosage: 325 MG (85 MG IRON ) TABLET
     Route: 048
  4. ASPIRIN. [Concomitant]
     Active Substance: ASPIRIN
     Indication: PRODUCT USED FOR UNKNOWN INDICATION
     Dosage: 81 MG , 1 TABLET, ONCE DAILY (QD), DELAYED RELEASE
     Route: 048
     Dates: start: 20130703
  5. VIMPAT [Suspect]
     Active Substance: LACOSAMIDE
     Dosage: 50 MG, 2X/DAY (BID)
     Route: 048
     Dates: start: 20150225
  6. VIMPAT [Suspect]
     Active Substance: LACOSAMIDE
     Indication: SEIZURE
     Dosage: 100 MG-1 TABLET, 2X/DAY (BID)
     Route: 048
     Dates: end: 201502
  7. VANCOMYCIN [Concomitant]
     Active Substance: VANCOMYCIN
     Indication: PRODUCT USED FOR UNKNOWN INDICATION
     Dosage: 2.5 ML EVERY 6 HOURS
     Route: 048
  8. PRAVASTATIN [Concomitant]
     Active Substance: PRAVASTATIN\PRAVASTATIN SODIUM
     Indication: PRODUCT USED FOR UNKNOWN INDICATION
     Dosage: 20 MG, ONCE DAILY (QD) AT BEDTIME
     Route: 048
  9. VIMPAT [Suspect]
     Active Substance: LACOSAMIDE
     Dosage: 50 MG -2 TABLETS, 2X/DAY (BID)
     Route: 048
     Dates: start: 20140204, end: 2014
  10. PLAVIX [Concomitant]
     Active Substance: CLOPIDOGREL BISULFATE
     Indication: PRODUCT USED FOR UNKNOWN INDICATION
     Dosage: UNK

REACTIONS (8)
  - Amnesia [Unknown]
  - Tremor [Unknown]
  - Mental impairment [Unknown]
  - Feeling abnormal [Unknown]
  - Palpitations [Unknown]
  - Blood pressure increased [Unknown]
  - Anxiety [Unknown]
  - Pain [Unknown]
